FAERS Safety Report 23755473 (Version 1)
Quarter: 2024Q2

REPORT INFORMATION
  Report Type: Spontaneous
  Country: RU (occurrence: None)
  Receive Date: 20240418
  Receipt Date: 20240418
  Transmission Date: 20240716
  Serious: Yes (Other)
  Sender: FDA-Public Use
  Company Number: RU-ROCHE-3544068

PATIENT
  Age: 63 Year
  Sex: Female

DRUGS (8)
  1. TRASTUZUMAB [Suspect]
     Active Substance: TRASTUZUMAB
     Indication: Breast cancer stage II
     Dosage: SUBSEQUENT DOSE 6MG/KG, THEN EVERY 6 MONTHS FOR 2 YEARS AND THEN ONCE A YEAR
     Route: 041
  2. PERTUZUMAB [Suspect]
     Active Substance: PERTUZUMAB
     Indication: Breast cancer stage II
     Dosage: SUBSEQUENT 420 MG.
     Route: 065
  3. ADO-TRASTUZUMAB EMTANSINE [Suspect]
     Active Substance: ADO-TRASTUZUMAB EMTANSINE
     Indication: Breast cancer stage II
     Dosage: UP TO 14 ADMINISTRATIONS.
     Route: 065
     Dates: start: 20240325
  4. DOCETAXEL [Suspect]
     Active Substance: DOCETAXEL\DOCETAXEL ANHYDROUS
     Indication: Breast cancer stage II
     Dosage: ON DAY 1 EVERY 3 WEEKS WITH ADEQUATE ANTIEMETIC THERAPY.
     Route: 065
  5. CARBOPLATIN [Suspect]
     Active Substance: CARBOPLATIN
     Indication: Breast cancer stage II
     Dosage: ON DAY 1 EVERY 3 WEEKS WITH ADEQUATE ANTIEMETIC THERAPY.
     Route: 042
  6. LAPATINIB [Concomitant]
     Active Substance: LAPATINIB
     Dosage: 1,000-1,250 MG ORALLY DAILY
     Route: 048
     Dates: start: 20230920, end: 20231228
  7. PACLITAXEL [Concomitant]
     Active Substance: PACLITAXEL
     Dosage: 65-80 MG/M2 IV WEEKLY FOR 12 CYCLES.
     Route: 042
     Dates: start: 20230920, end: 20231228
  8. DAPAGLIFLOZIN [Concomitant]
     Active Substance: DAPAGLIFLOZIN

REACTIONS (9)
  - Neutropenia [Unknown]
  - Thrombocytopenia [Unknown]
  - Acute myocardial infarction [Unknown]
  - Cardiac aneurysm [Unknown]
  - Asthenia [Unknown]
  - Skin toxicity [Unknown]
  - Ejection fraction decreased [Unknown]
  - Anaemia [Unknown]
  - Peripheral sensory neuropathy [Unknown]
